FAERS Safety Report 10274940 (Version 1)
Quarter: 2014Q3

REPORT INFORMATION
  Report Type: Spontaneous
  Country: GB (occurrence: GB)
  Receive Date: 20140702
  Receipt Date: 20140702
  Transmission Date: 20150326
  Serious: Yes (Life-Threatening)
  Sender: FDA-Public Use
  Company Number: PHHY2014GB079470

PATIENT
  Age: 87 Year
  Sex: Male
  Weight: 60 kg

DRUGS (9)
  1. BIMATOPROST [Concomitant]
     Active Substance: BIMATOPROST
  2. TIOTROPIUM [Concomitant]
     Active Substance: TIOTROPIUM
  3. AMOXICILLIN. [Suspect]
     Active Substance: AMOXICILLIN
     Indication: LOWER RESPIRATORY TRACT INFECTION
     Dosage: 1 G, UNK
     Route: 042
     Dates: start: 20140618, end: 20140618
  4. SALBUTAMOL [Concomitant]
     Active Substance: ALBUTEROL
  5. SERETIDE [Concomitant]
     Active Substance: FLUTICASONE FUROATE\SALMETEROL XINAFOATE
  6. WARFARIN [Concomitant]
     Active Substance: WARFARIN
  7. BRINZOLAMIDE [Concomitant]
     Active Substance: BRINZOLAMIDE
  8. PHYLLOCONTIN [Concomitant]
     Active Substance: AMINOPHYLLINE
  9. CARBOCISTEINE [Concomitant]
     Active Substance: CARBOCYSTEINE

REACTIONS (5)
  - Unresponsive to stimuli [Recovered/Resolved]
  - Circulatory collapse [Recovered/Resolved]
  - Flushing [Recovered/Resolved]
  - Hypotension [Recovered/Resolved]
  - Pulse absent [Recovered/Resolved]

NARRATIVE: CASE EVENT DATE: 20140618
